FAERS Safety Report 24126227 (Version 1)
Quarter: 2024Q3

REPORT INFORMATION
  Report Type: Spontaneous
  Country: US (occurrence: None)
  Receive Date: 20240721
  Receipt Date: 20240721
  Transmission Date: 20241016
  Serious: Yes (Disabling)
  Sender: Public
  Company Number: None

PATIENT
  Age: 73 Year
  Sex: Female
  Weight: 55.8 kg

DRUGS (6)
  1. PROLIA [Suspect]
     Active Substance: DENOSUMAB
     Indication: Osteoporosis
     Dosage: OTHER FREQUENCY : EVERY 6 MONTHS;?OTHER ROUTE : INJECTED SUBCUTANEOUSLY;?
     Route: 050
     Dates: start: 20231116, end: 20240517
  2. LEVOTHYROXINE [Concomitant]
  3. Olmesartan HCL [Concomitant]
  4. Buproprion [Concomitant]
  5. VITAMIN D3 [Concomitant]
     Active Substance: CHOLECALCIFEROL
  6. ZYRTEC [Concomitant]
     Active Substance: CETIRIZINE HYDROCHLORIDE

REACTIONS (18)
  - Jaw disorder [None]
  - Trismus [None]
  - Pain in extremity [None]
  - Post procedural complication [None]
  - Injection site swelling [None]
  - Injection site pain [None]
  - Injection site discharge [None]
  - Paraesthesia [None]
  - Paraesthesia [None]
  - Hypoaesthesia [None]
  - Neck pain [None]
  - Hypoaesthesia [None]
  - Hypoaesthesia [None]
  - Hypokinesia [None]
  - Cervical spinal stenosis [None]
  - Intervertebral disc protrusion [None]
  - Inflammation [None]
  - Neuritis [None]

NARRATIVE: CASE EVENT DATE: 20240516
